FAERS Safety Report 9191679 (Version 1)
Quarter: 2013Q1

REPORT INFORMATION
  Report Type: Spontaneous
  Country: US (occurrence: US)
  Receive Date: 20130326
  Receipt Date: 20130326
  Transmission Date: 20140127
  Serious: No
  Sender: FDA-Public Use
  Company Number: US-009507513-1303USA010719

PATIENT
  Sex: Male

DRUGS (2)
  1. AZASITE [Suspect]
     Dosage: 2 DROPS PER EYE PER DAY FOR THE FIRST TWO DAYS
     Route: 047
  2. AZASITE [Suspect]
     Dosage: 1 DROP PER EYE FOR THE REMAINDER OF THE MONTH
     Route: 047

REACTIONS (4)
  - Incorrect drug administration duration [Unknown]
  - No adverse event [Unknown]
  - Inappropriate schedule of drug administration [Unknown]
  - Underdose [Unknown]
